FAERS Safety Report 8131647-7 (Version None)
Quarter: 2012Q1

REPORT INFORMATION
  Report Type: 
  Country: None (occurrence: None)
  Receive Date: 20120103
  Receipt Date: 20111004
  Transmission Date: 20120608
  Serious: No
  Sender: FDA-Public Use
  Company Number: AE-2011-001162

PATIENT
  Sex: Female

DRUGS (6)
  1. ANTIDEPRESSANT (ANTIDEPRESSANTS) [Concomitant]
  2. INCIVEK [Suspect]
     Dosage: (3 IN 1 D),ORAL
     Route: 048
     Dates: start: 20110826
  3. RIBASPHERE [Concomitant]
  4. STOMACH MEDICATION [Concomitant]
  5. ATIVAN [Concomitant]
  6. PEGINTRON (PEGINTERFERON ALFA-2A) [Concomitant]

REACTIONS (3)
  - NAUSEA [None]
  - PYREXIA [None]
  - RASH [None]
